FAERS Safety Report 6459991-X (Version None)
Quarter: 2009Q4

REPORT INFORMATION
  Report Type: 
  Country: None (occurrence: None)
  Receive Date: 20091129
  Receipt Date: 20091118
  Transmission Date: 20100525
  Serious: Yes (Hospitalization)
  Sender: FDA-Public Use
  Company Number: PHEH2009US11442

PATIENT
  Sex: Female
  Weight: 79.819 kg

DRUGS (2)
  1. EXJADE [Suspect]
     Indication: MYELODYSPLASTIC SYNDROME
     Dosage: 1500 MG DAILY
     Route: 048
     Dates: start: 20090713, end: 20090828
  2. EXJADE [Suspect]
     Indication: HAEMOSIDEROSIS

REACTIONS (4)
  - DEHYDRATION [None]
  - FAECALOMA [None]
  - MUSCLE SPASMS [None]
  - VOMITING [None]
